FAERS Safety Report 25974315 (Version 1)
Quarter: 2025Q4

REPORT INFORMATION
  Report Type: Spontaneous
  Country: US (occurrence: None)
  Receive Date: 20251028
  Receipt Date: 20251028
  Transmission Date: 20260119
  Serious: Yes (Death, Hospitalization)
  Sender: FDA-CTU
  Company Number: None

PATIENT
  Age: 78 Year
  Sex: Female

DRUGS (14)
  1. TADALAFIL [Suspect]
     Active Substance: TADALAFIL
     Indication: Pulmonary hypertension
     Dosage: FREQUENCY : DAILY;?
     Route: 048
     Dates: start: 20190104, end: 20250822
  2. AMBRISENTAN [Suspect]
     Active Substance: AMBRISENTAN
  3. POTASSIUM CHLORIDE [Concomitant]
     Active Substance: POTASSIUM CHLORIDE
  4. ATORVASTATIN [Concomitant]
     Active Substance: ATORVASTATIN
  5. MONTELUKAST [Concomitant]
     Active Substance: MONTELUKAST
  6. TORSEMIDE [Concomitant]
     Active Substance: TORSEMIDE
  7. METOPROLOL [Concomitant]
     Active Substance: METOPROLOL
  8. ALLOPURINOL [Concomitant]
     Active Substance: ALLOPURINOL
  9. SACUBITRIL [Concomitant]
     Active Substance: SACUBITRIL
  10. SPIRIVA RESPIMAT [Concomitant]
     Active Substance: TIOTROPIUM BROMIDE
  11. albuterol HFAA [Concomitant]
  12. TYLENOL [Concomitant]
     Active Substance: ACETAMINOPHEN
  13. VITAMINS [Concomitant]
     Active Substance: VITAMINS
  14. FERROUS SULFATE [Concomitant]
     Active Substance: FERROUS SULFATE

REACTIONS (5)
  - Oedema peripheral [None]
  - Dyspnoea [None]
  - Hypotension [None]
  - Cardiogenic shock [None]
  - Acute kidney injury [None]

NARRATIVE: CASE EVENT DATE: 20250723
